FAERS Safety Report 14147401 (Version 3)
Quarter: 2017Q4

REPORT INFORMATION
  Report Type: Spontaneous
  Country: AU (occurrence: AU)
  Receive Date: 20171031
  Receipt Date: 20171121
  Transmission Date: 20180321
  Serious: Yes (Other)
  Sender: FDA-Public Use
  Company Number: PHHY2017AU160240

PATIENT
  Age: 59 Year
  Sex: Female

DRUGS (2)
  1. LETROZOLE. [Suspect]
     Active Substance: LETROZOLE
     Indication: BREAST CANCER
     Dosage: 2.5 MG, QD
     Route: 065
     Dates: end: 2014
  2. LETROZOLE. [Suspect]
     Active Substance: LETROZOLE
     Dosage: UNK
     Route: 065
     Dates: start: 20171020

REACTIONS (15)
  - Breast cancer metastatic [Unknown]
  - Endocrine disorder [Unknown]
  - Dyspnoea exertional [Unknown]
  - Metastases to bone [Unknown]
  - Breast cancer recurrent [Unknown]
  - Globulins decreased [Recovered/Resolved]
  - Inflammation [Unknown]
  - Blood albumin decreased [Unknown]
  - Blood sodium decreased [Recovered/Resolved]
  - Malignant pleural effusion [Unknown]
  - Neutrophil count increased [Unknown]
  - Gamma-glutamyltransferase increased [Unknown]
  - Protein total decreased [Unknown]
  - Bundle branch block left [Unknown]
  - Abnormal labour [Unknown]

NARRATIVE: CASE EVENT DATE: 2007
